FAERS Safety Report 9302785 (Version 1)
Quarter: 2013Q2

REPORT INFORMATION
  Report Type: Spontaneous
  Country: BR (occurrence: BR)
  Receive Date: 20130522
  Receipt Date: 20130522
  Transmission Date: 20140414
  Serious: Yes (Other)
  Sender: FDA-Public Use
  Company Number: BR-AMGEN-BRASP2012068309

PATIENT
  Age: 37 Year
  Sex: Female
  Weight: 88 kg

DRUGS (3)
  1. ENBREL [Suspect]
     Indication: PSORIATIC ARTHROPATHY
     Dosage: 50 MG, ONCE WEEKLY
     Route: 058
     Dates: start: 20121003, end: 201303
  2. METHOTREXATE [Concomitant]
     Dosage: 7 TABLETS OF STRENGTH 2.5 MG (17.5 MG) ONCE WEEKLY
  3. FOLIC ACID [Concomitant]
     Indication: ARTHRITIS
     Dosage: STRENGTH 5MG, UNK

REACTIONS (6)
  - Diabetes mellitus [Unknown]
  - Injection site urticaria [Unknown]
  - Injection site erythema [Unknown]
  - Injection site pain [Unknown]
  - Injection site pruritus [Unknown]
  - Injection site warmth [Unknown]
